FAERS Safety Report 25064241 (Version 1)
Quarter: 2025Q1

REPORT INFORMATION
  Report Type: Spontaneous
  Country: US (occurrence: None)
  Receive Date: 20250310
  Receipt Date: 20250310
  Transmission Date: 20250409
  Serious: Yes (Life-Threatening)
  Sender: FDA-CTU
  Company Number: None

PATIENT
  Age: 8 Day
  Sex: Male
  Weight: 0.45 kg

DRUGS (1)
  1. DOPAMINE [Suspect]
     Active Substance: DOPAMINE HYDROCHLORIDE

REACTIONS (5)
  - Drug delivery system malfunction [None]
  - Inadvertent injection air bubble [None]
  - Blood pressure decreased [None]
  - Rebound effect [None]
  - Blood pressure increased [None]

NARRATIVE: CASE EVENT DATE: 20250307
